FAERS Safety Report 20886337 (Version 1)
Quarter: 2022Q2

REPORT INFORMATION
  Report Type: Spontaneous
  Country: ES (occurrence: ES)
  Receive Date: 20220527
  Receipt Date: 20220527
  Transmission Date: 20220720
  Serious: Yes (Other)
  Sender: FDA-Public Use
  Company Number: None

PATIENT
  Age: 62 Year
  Sex: Female

DRUGS (5)
  1. ACETAMINOPHEN [Suspect]
     Active Substance: ACETAMINOPHEN
     Indication: Back pain
     Dosage: UNK
     Route: 065
     Dates: start: 20210831, end: 20210923
  2. TRAMADOL [Suspect]
     Active Substance: TRAMADOL
     Indication: Back pain
     Dosage: 100 MG, Q8H (1-1-1)
     Route: 065
     Dates: start: 20210901, end: 20210923
  3. DEXKETOPROFEN [Suspect]
     Active Substance: DEXKETOPROFEN
     Indication: Back pain
     Dosage: 50 MG, Q8H (1-1-1)
     Route: 065
     Dates: start: 20210901, end: 20210923
  4. MEROPENEM [Suspect]
     Active Substance: MEROPENEM
     Indication: Postoperative wound infection
     Dosage: UNK
     Route: 065
     Dates: start: 20210920, end: 20210922
  5. METAMIZOLE [Suspect]
     Active Substance: METAMIZOLE
     Indication: Back pain
     Dosage: 2 G, TID (1-1-1)
     Route: 065
     Dates: start: 20210901, end: 20210923

REACTIONS (1)
  - Hepatocellular injury [Recovered/Resolved]

NARRATIVE: CASE EVENT DATE: 20210922
